FAERS Safety Report 5195604-5 (Version None)
Quarter: 2007Q1

REPORT INFORMATION
  Report Type: 
  Country: None (occurrence: None)
  Receive Date: 20070102
  Receipt Date: 20061226
  Transmission Date: 20070707
  Serious: Yes (Hospitalization)
  Sender: FDA-Public Use
  Company Number: FR-AVENTIS-200614551FR

PATIENT
  Age: 60 Year
  Sex: Male
  Weight: 87 kg

DRUGS (3)
  1. FLAGYL [Suspect]
     Indication: SEPTIC SHOCK
     Route: 042
     Dates: start: 20060602, end: 20060616
  2. TAZOCILLINE [Suspect]
     Indication: SEPTIC SHOCK
     Route: 042
     Dates: start: 20060602, end: 20060616
  3. ZOVIRAX [Concomitant]
     Indication: HERPES SIMPLEX
     Route: 042
     Dates: start: 20060613

REACTIONS (1)
  - AGRANULOCYTOSIS [None]
